FAERS Safety Report 10142444 (Version 4)
Quarter: 2015Q3

REPORT INFORMATION
  Report Type: Report from Study
  Country: JP (occurrence: JP)
  Receive Date: 20140430
  Receipt Date: 20150911
  Transmission Date: 20151125
  Serious: Yes (Hospitalization)
  Sender: FDA-Public Use
  Company Number: JP-ROCHE-1387971

PATIENT
  Age: 79 Year
  Sex: Male
  Weight: 55 kg

DRUGS (24)
  1. AMLODIPINE [Concomitant]
     Active Substance: AMLODIPINE BESYLATE
     Route: 048
  2. THYRADIN-S [Concomitant]
     Active Substance: LEVOTHYROXINE
     Indication: HYPOTHYROIDISM
     Dosage: THE BEGINNING OF DOSAGE DAY: IT IS ABOUT FRONT FACILITIES MARCH OF THE FORMULA.
     Route: 048
  3. BIOFERMIN [Concomitant]
     Active Substance: BACILLUS SUBTILIS\LACTOBACILLUS ACIDOPHILUS\STREPTOCOCCUS FAECAIS
     Dosage: DOSAGE IS UNCERTAIN.
     Route: 048
  4. THEO-DUR [Concomitant]
     Active Substance: THEOPHYLLINE ANHYDROUS
     Route: 048
  5. DEPAS [Concomitant]
     Active Substance: ETIZOLAM
     Route: 048
  6. PLAVIX [Concomitant]
     Active Substance: CLOPIDOGREL BISULFATE
     Indication: CORONARY ARTERY BYPASS
     Dosage: THE BEGINNING OF DOSAGE DAY: IT IS ABOUT FRONT FACILITIES MARCH OF THE FORMULA.
     Route: 048
  7. REBAMIPIDE [Concomitant]
     Active Substance: REBAMIPIDE
     Indication: GASTRIC ULCER
     Dosage: THE BEGINNING OF DOSAGE DAY: IT IS ABOUT FRONT FACILITIES MARCH OF THE FORMULA.
     Route: 048
  8. BLOPRESS [Concomitant]
     Active Substance: CANDESARTAN CILEXETIL
     Dosage: DOSAGE IS UNCERTAIN.
     Route: 048
  9. PARIET [Concomitant]
     Active Substance: RABEPRAZOLE SODIUM
     Route: 048
  10. SIGMART [Concomitant]
     Active Substance: NICORANDIL
     Indication: CORONARY ARTERY BYPASS
     Dosage: THE BEGINNING OF DOSAGE DAY: IT IS ABOUT FRONT FACILITIES MARCH OF THE FORMULA.
     Route: 048
  11. MICAMLO [Concomitant]
     Active Substance: AMLODIPINE BESYLATE\TELMISARTAN
     Dosage: DOSAGE IS UNCERTAIN.
     Route: 048
  12. ZETIA [Concomitant]
     Active Substance: EZETIMIBE
     Indication: CORONARY ARTERY BYPASS
     Dosage: THE BEGINNING OF DOSAGE DAY: IT IS ABOUT FRONT FACILITIES MARCH OF THE FORMULA.
     Route: 048
  13. METHOXY POLYETHYLENE GLYCOL-EPOETIN BETA [Suspect]
     Active Substance: METHOXY POLYETHYLENE GLYCOL-EPOETIN BETA
     Indication: NEPHROGENIC ANAEMIA
     Route: 042
     Dates: start: 20140307
  14. BAYASPIRIN [Concomitant]
     Active Substance: ASPIRIN
     Indication: CORONARY ARTERY BYPASS
     Dosage: THE BEGINNING OF DOSAGE DAY: IT IS ABOUT FRONT FACILITIES MARCH OF THE FORMULA.
     Route: 048
  15. MICARDIS [Concomitant]
     Active Substance: TELMISARTAN
     Route: 048
  16. FRANDOL [Concomitant]
     Active Substance: ISOSORBIDE DINITRATE
     Dosage: DOSAGE IS UNCERTAIN.
     Route: 062
  17. FESIN (JAPAN) [Concomitant]
     Active Substance: IRON SUCROSE
     Dosage: DOSAGE IS UNCERTAIN.
     Route: 065
  18. MEXITIL [Concomitant]
     Active Substance: MEXILETINE HYDROCHLORIDE
     Route: 048
  19. NESP [Concomitant]
     Active Substance: DARBEPOETIN ALFA
     Route: 065
  20. ALFAROL [Concomitant]
     Active Substance: ALFACALCIDOL
     Indication: CHRONIC KIDNEY DISEASE
     Dosage: THE BEGINNING OF DOSAGE DAY: IT IS ABOUT FRONT FACILITIES MARCH OF THE FORMULA.
     Route: 048
  21. METHOXY POLYETHYLENE GLYCOL-EPOETIN BETA [Suspect]
     Active Substance: METHOXY POLYETHYLENE GLYCOL-EPOETIN BETA
     Route: 042
     Dates: end: 20140404
  22. CARBOCISTEINE [Concomitant]
     Active Substance: CARBOCYSTEINE
     Indication: DIFFUSE PANBRONCHIOLITIS
     Dosage: THE BEGINNING OF DOSAGE DAY: IT IS ABOUT FRONT FACILITIES MARCH OF THE FORMULA.
     Route: 048
  23. BETAHISTINE MESILATE [Concomitant]
     Active Substance: BETAHISTINE MESILATE
     Dosage: DOSAGE IS UNCERTAIN.
     Route: 048
  24. MOSAPRIDE CITRATE [Concomitant]
     Active Substance: MOSAPRIDE CITRATE
     Dosage: DOSAGE IS UNCERTAIN.
     Route: 048

REACTIONS (1)
  - Aplasia pure red cell [Recovered/Resolved]

NARRATIVE: CASE EVENT DATE: 20140411
